FAERS Safety Report 16400429 (Version 1)
Quarter: 2019Q2

REPORT INFORMATION
  Report Type: Spontaneous
  Country: DE (occurrence: DE)
  Receive Date: 20190606
  Receipt Date: 20190606
  Transmission Date: 20190711
  Serious: Yes (Other)
  Sender: FDA-Public Use
  Company Number: DE-PFIZER INC-2019242195

PATIENT

DRUGS (6)
  1. CARBOPLATIN. [Suspect]
     Active Substance: CARBOPLATIN
     Dosage: 4 CYCLES
     Dates: start: 2018, end: 201812
  2. PACLITAXEL. [Suspect]
     Active Substance: PACLITAXEL
     Dosage: 3 CYCLES
     Dates: end: 2019
  3. PEMETREXED DISODIUM [Suspect]
     Active Substance: PEMETREXED DISODIUM
     Dosage: 4 CYCLES
  4. KEYTRUDA [Suspect]
     Active Substance: PEMBROLIZUMAB
     Indication: NON-SMALL CELL LUNG CANCER STAGE IV
     Dosage: MONOTHERAPY
     Dates: start: 2018
  5. KEYTRUDA [Suspect]
     Active Substance: PEMBROLIZUMAB
     Dosage: MONOTHERAPY
     Dates: start: 2018, end: 2018
  6. KEYTRUDA [Suspect]
     Active Substance: PEMBROLIZUMAB
     Dosage: UNK
     Dates: end: 201905

REACTIONS (9)
  - Arthralgia [Unknown]
  - Neoplasm progression [Unknown]
  - Cholangitis [Unknown]
  - Abdominal pain upper [Unknown]
  - Streptococcal sepsis [Unknown]
  - Drug intolerance [Unknown]
  - Vena cava thrombosis [Unknown]
  - Neuropathy peripheral [Unknown]
  - Chest pain [Unknown]

NARRATIVE: CASE EVENT DATE: 2018
